FAERS Safety Report 25467523 (Version 4)
Quarter: 2025Q3

REPORT INFORMATION
  Report Type: Spontaneous
  Country: US (occurrence: US)
  Receive Date: 20250623
  Receipt Date: 20250804
  Transmission Date: 20251021
  Serious: No
  Sender: ABBVIE
  Company Number: US-ABBVIE-6336087

PATIENT
  Sex: Male

DRUGS (1)
  1. VYALEV [Suspect]
     Active Substance: FOSCARBIDOPA\FOSLEVODOPA
     Indication: Parkinson^s disease
     Route: 058
     Dates: start: 20250528, end: 202506

REACTIONS (9)
  - Infusion site urticaria [Not Recovered/Not Resolved]
  - Infusion site urticaria [Recovering/Resolving]
  - Infusion site erythema [Unknown]
  - Infusion site swelling [Unknown]
  - Infusion site infection [Not Recovered/Not Resolved]
  - Infusion site discharge [Recovered/Resolved]
  - Infusion site pain [Unknown]
  - Parkinson^s disease [Unknown]
  - Infusion site reaction [Unknown]

NARRATIVE: CASE EVENT DATE: 20250101
